FAERS Safety Report 5867868-3 (Version None)
Quarter: 2008Q3

REPORT INFORMATION
  Report Type: 
  Country: None (occurrence: None)
  Receive Date: 20080902
  Receipt Date: 20080901
  Transmission Date: 20090109
  Serious: Yes (Hospitalization)
  Sender: FDA-Public Use
  Company Number: PL-BOEHRINGER INGELHEIM GMBH, GERMANY-2008-DE-05159GD

PATIENT
  Sex: Female

DRUGS (1)
  1. CLONIDINE [Suspect]
     Route: 048

REACTIONS (7)
  - ABNORMAL BEHAVIOUR [None]
  - DRUG ABUSE [None]
  - HYPOTENSION [None]
  - LOSS OF CONSCIOUSNESS [None]
  - SOMNOLENCE [None]
  - VICTIM OF SEXUAL ABUSE [None]
  - VOMITING [None]
